FAERS Safety Report 21561477 (Version 1)
Quarter: 2022Q4

REPORT INFORMATION
  Report Type: Spontaneous
  Country: US (occurrence: None)
  Receive Date: 20221104
  Receipt Date: 20221104
  Transmission Date: 20230113
  Serious: Yes (Disabling)
  Sender: FDA-Public Use
  Company Number: None

PATIENT
  Age: 62 Year
  Sex: Female
  Weight: 54 kg

DRUGS (1)
  1. CYTOMEL [Suspect]
     Active Substance: LIOTHYRONINE SODIUM
     Indication: Hypothyroidism
     Dosage: FREQUENCY : EVERY 4 HOURS;?
     Route: 048
     Dates: start: 20221001, end: 20221026

REACTIONS (7)
  - Condition aggravated [None]
  - Fatigue [None]
  - Product quality issue [None]
  - Weight increased [None]
  - Depressed level of consciousness [None]
  - Alopecia [None]
  - Product formulation issue [None]

NARRATIVE: CASE EVENT DATE: 20221026
